FAERS Safety Report 5007837-9 (Version None)
Quarter: 2006Q2

REPORT INFORMATION
  Report Type: 
  Country: None (occurrence: None)
  Receive Date: 20060522
  Receipt Date: 20060510
  Transmission Date: 20061013
  Serious: Yes (Hospitalization, Other)
  Sender: FDA-Public Use
  Company Number: JP-MERCK-0605USA02568

PATIENT
  Age: 73 Year
  Sex: Female

DRUGS (9)
  1. PRINIVIL [Suspect]
     Route: 048
     Dates: start: 20060314
  2. DORIPENEM [Concomitant]
     Indication: PNEUMONIA
     Route: 041
     Dates: start: 20060328, end: 20060402
  3. LANIRAPID [Concomitant]
     Route: 048
     Dates: start: 20060314
  4. SPIROPENT [Concomitant]
     Route: 048
     Dates: start: 20060314
  5. BUFFERIN [Concomitant]
     Route: 048
     Dates: start: 20060314
  6. NORVASC [Concomitant]
     Route: 048
     Dates: start: 20060314
  7. FLUTIDE [Concomitant]
     Route: 055
     Dates: start: 20060314
  8. MUCODYNE [Concomitant]
     Indication: PNEUMONIA
     Route: 048
     Dates: start: 20060328
  9. DASEN [Concomitant]
     Indication: PNEUMONIA
     Route: 048
     Dates: start: 20060328

REACTIONS (2)
  - LUNG NEOPLASM MALIGNANT [None]
  - PNEUMONIA [None]
